FAERS Safety Report 9387549 (Version 2)
Quarter: 2013Q3

REPORT INFORMATION
  Report Type: Spontaneous
  Country: JP (occurrence: JP)
  Receive Date: 20130708
  Receipt Date: 20130724
  Transmission Date: 20140515
  Serious: Yes (Other)
  Sender: FDA-Public Use
  Company Number: JP-PFIZER INC-2013198280

PATIENT
  Age: 76 Year
  Sex: Female

DRUGS (10)
  1. LYRICA [Suspect]
     Indication: PAIN
     Dosage: 150 MG/DAY
     Route: 048
     Dates: start: 20120710
  2. LYRICA [Suspect]
     Dosage: 25 MG/DAY
     Route: 048
  3. LYRICA [Suspect]
     Dosage: 50 MG/DAY
     Route: 048
  4. LYRICA [Suspect]
     Dosage: 75 MG/DAY
     Route: 048
  5. MYONAL [Concomitant]
     Dosage: 150 MG/DAY
  6. NEUROTROPIN [Concomitant]
     Dosage: 4 TABLETS/DAY
  7. METHYCOBAL [Concomitant]
     Dosage: 3 TABLETS/DAY
  8. EVISTA [Concomitant]
     Dosage: 1 DF, 1X/DAY
  9. CIRCANETTEN [Concomitant]
     Dosage: 3 TABLETS/DAY
  10. EMPYNASE P [Concomitant]
     Dosage: 3 TABLETS/DAY

REACTIONS (4)
  - Intraocular pressure increased [Recovering/Resolving]
  - Dizziness [Unknown]
  - Weight increased [Unknown]
  - Vision blurred [Unknown]
